FAERS Safety Report 7651664-0 (Version None)
Quarter: 2011Q3

REPORT INFORMATION
  Report Type: 
  Country: None (occurrence: None)
  Receive Date: 20110802
  Receipt Date: 20110729
  Transmission Date: 20111222
  Serious: Yes (Hospitalization, Other)
  Sender: FDA-Public Use
  Company Number: VE-ABBOTT-11P-178-0842071-00

PATIENT
  Sex: Female
  Weight: 59 kg

DRUGS (2)
  1. KALETRA [Suspect]
     Indication: PROPHYLAXIS AGAINST HIV INFECTION
     Route: 048
     Dates: start: 20110619, end: 20110628
  2. LAMIVUDINE + ZIDOVUDINE [Suspect]
     Indication: PROPHYLAXIS AGAINST HIV INFECTION
     Route: 048
     Dates: start: 20110619, end: 20110628

REACTIONS (3)
  - RASH GENERALISED [None]
  - DYSPNOEA [None]
  - ANAPHYLACTIC REACTION [None]
